FAERS Safety Report 9351382 (Version 1)
Quarter: 2013Q2

REPORT INFORMATION
  Report Type: Report from Study
  Country: CA (occurrence: CA)
  Receive Date: 20130617
  Receipt Date: 20130617
  Transmission Date: 20140414
  Serious: Yes (Death)
  Sender: FDA-Public Use
  Company Number: CA-JNJFOC-20130609977

PATIENT
  Age: 64 Year
  Sex: Female
  Weight: 54 kg

DRUGS (4)
  1. REMICADE [Suspect]
     Indication: CROHN^S DISEASE
     Route: 042
     Dates: start: 20090220
  2. CALCIUM [Concomitant]
     Dosage: UNSPECIFIED DOSE, UNITS:MG
     Route: 065
  3. MORPHINE [Concomitant]
     Dosage: UNSPECIFIED DOSE, UNITS:MG
     Route: 065
  4. VIT-D [Concomitant]
     Dosage: UNSPECIFIED DOSE, UNITS:MG
     Route: 065

REACTIONS (1)
  - Cerebrovascular accident [Fatal]
